FAERS Safety Report 4757900-2 (Version None)
Quarter: 2005Q3

REPORT INFORMATION
  Report Type: 
  Country: None (occurrence: None)
  Receive Date: 20050831
  Receipt Date: 20050513
  Transmission Date: 20060218
  Serious: Yes (Disabling)
  Sender: FDA-Public Use
  Company Number: 200514732GDDC

PATIENT
  Age: 70 Year
  Sex: Male
  Weight: 124.8 kg

DRUGS (10)
  1. LANTUS [Suspect]
     Indication: DIABETES MELLITUS NON-INSULIN-DEPENDENT
     Dosage: DOSE UNIT: UNITS
     Route: 058
     Dates: start: 20050404, end: 20050510
  2. GLICLAZIDE [Concomitant]
     Indication: DIABETES MELLITUS
  3. ROSIGLITAZONE [Concomitant]
     Indication: DIABETES MELLITUS
  4. BEZALIP-MONO [Concomitant]
     Indication: LIPIDS INCREASED
  5. ATORVASTATIN CALCIUM [Concomitant]
     Indication: LIPIDS INCREASED
  6. ALLOPURINOL [Concomitant]
     Indication: GOUT
     Dosage: DOSE: UNK
  7. LOSARTAN POTASSIUM [Concomitant]
     Indication: BLOOD PRESSURE INCREASED
  8. VERAPAMIL - SLOW RELEASE [Concomitant]
     Indication: BLOOD PRESSURE INCREASED
  9. DOXAZOSIN [Concomitant]
     Indication: BLOOD PRESSURE INCREASED
  10. FINASTERIDE [Concomitant]
     Indication: BLOOD PRESSURE INCREASED

REACTIONS (8)
  - ABNORMAL DREAMS [None]
  - AFFECTIVE DISORDER [None]
  - BLOOD GLUCOSE INCREASED [None]
  - DEPRESSION [None]
  - HEADACHE [None]
  - NIGHTMARE [None]
  - SLEEP DISORDER [None]
  - TEARFULNESS [None]
